FAERS Safety Report 23593407 (Version 3)
Quarter: 2024Q2

REPORT INFORMATION
  Report Type: Spontaneous
  Country: BR (occurrence: BR)
  Receive Date: 20240304
  Receipt Date: 20240419
  Transmission Date: 20240716
  Serious: Yes (Disabling)
  Sender: FDA-Public Use
  Company Number: BR-ORGANON-O2403BRA000141

PATIENT
  Age: 18 Year
  Sex: Female

DRUGS (3)
  1. ETONOGESTREL [Suspect]
     Active Substance: ETONOGESTREL
     Indication: Contraception
     Dosage: 1 IMPLANT
     Route: 059
     Dates: start: 20240228
  2. CLENIL [BECLOMETASONE DIPROPIONATE] [Concomitant]
     Indication: Asthma
     Dosage: USED THREE SPRAYS
  3. ALBUTEROL [Concomitant]
     Active Substance: ALBUTEROL
     Indication: Asthma
     Dosage: USED THREE SPRAYS

REACTIONS (6)
  - Movement disorder [Recovered/Resolved]
  - Implant site discharge [Recovered/Resolved]
  - Pain in extremity [Recovered/Resolved]
  - Implant site pustules [Recovered/Resolved]
  - Implant site inflammation [Recovered/Resolved]
  - Gastritis [Unknown]

NARRATIVE: CASE EVENT DATE: 20240229
